FAERS Safety Report 8956250 (Version 1)
Quarter: 2012Q4

REPORT INFORMATION
  Report Type: 
  Country: FR (occurrence: FR)
  Receive Date: 20121210
  Receipt Date: 20121210
  Transmission Date: 20130627
  Serious: Yes (Death)
  Sender: FDA-Public Use
  Company Number: FR-SANOFI-AVENTIS-2012SA087375

PATIENT
  Age: 43 Year
  Sex: Female

DRUGS (4)
  1. PLAQUENIL [Suspect]
     Indication: DRUG USE FOR UNKNOWN INDICATION
     Route: 048
     Dates: start: 20110812, end: 20110815
  2. SINGULAIR [Suspect]
     Indication: DRUG USE FOR UNKNOWN INDICATION
     Route: 048
     Dates: end: 20110815
  3. ATARAX [Suspect]
     Indication: DRUG USE FOR UNKNOWN INDICATION
     Route: 048
     Dates: end: 20110815
  4. LEXOMIL [Concomitant]

REACTIONS (9)
  - Malaise [Fatal]
  - Loss of consciousness [Fatal]
  - Eye movement disorder [Fatal]
  - Convulsion [Fatal]
  - Agitation [Fatal]
  - Livedo reticularis [Fatal]
  - Ventricular tachycardia [Fatal]
  - Ventricular fibrillation [Fatal]
  - Cardio-respiratory arrest [Fatal]
